FAERS Safety Report 10573256 (Version 2)
Quarter: 2015Q1

REPORT INFORMATION
  Report Type: Spontaneous
  Country: US (occurrence: US)
  Receive Date: 20141110
  Receipt Date: 20150205
  Transmission Date: 20150720
  Serious: Yes (Disabling)
  Sender: FDA-Public Use
  Company Number: US-SA-2014SA151821

PATIENT
  Age: 40 Year
  Sex: Female
  Weight: 120 kg

DRUGS (4)
  1. LANTUS SOLOSTAR [Suspect]
     Active Substance: INSULIN GLARGINE
     Indication: DIABETES MELLITUS
     Dosage: DOSE:80 UNIT(S)
     Route: 065
     Dates: start: 20110101, end: 20141215
  2. SOLOSTAR [Concomitant]
     Active Substance: DEVICE
     Dates: start: 20110101, end: 20141215
  3. SOLOSTAR [Concomitant]
     Active Substance: DEVICE
     Dates: start: 20150114
  4. LANTUS SOLOSTAR [Suspect]
     Active Substance: INSULIN GLARGINE
     Indication: DIABETES MELLITUS
     Dosage: DOSE:80 UNIT(S)
     Route: 065
     Dates: start: 20150114

REACTIONS (2)
  - Disability [Unknown]
  - Drug administration error [Unknown]

NARRATIVE: CASE EVENT DATE: 20110101
